FAERS Safety Report 12294691 (Version 1)
Quarter: 2016Q2

REPORT INFORMATION
  Report Type: Spontaneous
  Country: US (occurrence: None)
  Receive Date: 20160421
  Receipt Date: 20160421
  Transmission Date: 20160815
  Serious: Yes (Other)
  Sender: FDA-Public Use
  Company Number: None

PATIENT
  Age: 63 Year
  Sex: Male
  Weight: 83.92 kg

DRUGS (6)
  1. METROPROLOL SUCC TAB 50 MG ER MA, 50 MG [Suspect]
     Active Substance: METOPROLOL SUCCINATE
     Indication: SINUS TACHYCARDIA
     Dosage: 3 TABLET (S) IN THE MORNING TAKEN BY MOUTH
     Route: 048
  2. DIAZEPAM. [Concomitant]
     Active Substance: DIAZEPAM
  3. BABY ASPIRIN [Concomitant]
     Active Substance: ASPIRIN
  4. METROPROLOL SUCC TAB 50 MG ER MA, 50 MG [Suspect]
     Active Substance: METOPROLOL SUCCINATE
     Indication: BUNDLE BRANCH BLOCK RIGHT
     Dosage: 3 TABLET (S) IN THE MORNING TAKEN BY MOUTH
     Route: 048
  5. GABAPENTIN. [Concomitant]
     Active Substance: GABAPENTIN
  6. METROPROLOL SUCC TAB 50 MG ER MA, 50 MG [Suspect]
     Active Substance: METOPROLOL SUCCINATE
     Indication: HEART SOUNDS ABNORMAL
     Dosage: 3 TABLET (S) IN THE MORNING TAKEN BY MOUTH
     Route: 048

REACTIONS (5)
  - Tachycardia [None]
  - Dizziness [None]
  - Product substitution issue [None]
  - Heart rate increased [None]
  - Chest discomfort [None]

NARRATIVE: CASE EVENT DATE: 20160419
